FAERS Safety Report 19601910 (Version 1)
Quarter: 2021Q3

REPORT INFORMATION
  Report Type: Spontaneous
  Country: NL (occurrence: NL)
  Receive Date: 20210723
  Receipt Date: 20210723
  Transmission Date: 20211014
  Serious: Yes (Other)
  Sender: FDA-Public Use
  Company Number: NL-TEVA-2021-NL-1934563

PATIENT
  Age: 45 Year
  Sex: Male
  Weight: 78 kg

DRUGS (2)
  1. DICLOFENAC GEL 23,2MG/G / VOLTAREN EMULGEL EXTRA STERK 23,2MG/G [Suspect]
     Active Substance: DICLOFENAC DIETHYLAMINE
     Indication: GOUT
     Dosage: 2 DOSAGE FORMS DAILY; 2 X A DAY, NO LONGER ON THE DAY OF CORONA VACCINATION.
     Dates: start: 20210606, end: 20210612
  2. IBUPROFEN CAPSULE ZACHT 400MG / BRAND NAME NOT SPECIFIED [Suspect]
     Active Substance: IBUPROFEN
     Indication: GOUT
     Dosage: 3 DOSAGE FORMS DAILY; 3X A DAY. ON THE DAY OF THE CORONA VACCINATION, ONLY 1 X FOR THE VACCINATION.
     Dates: start: 20210606, end: 20210612

REACTIONS (2)
  - Ocular discomfort [Not Recovered/Not Resolved]
  - Eye haematoma [Not Recovered/Not Resolved]

NARRATIVE: CASE EVENT DATE: 20210612
